FAERS Safety Report 20113028 (Version 1)
Quarter: 2021Q4

REPORT INFORMATION
  Report Type: Spontaneous
  Country: US (occurrence: None)
  Receive Date: 20211124
  Receipt Date: 20211124
  Transmission Date: 20220303
  Serious: Yes (Disabling, Other)
  Sender: FDA-Public Use
  Company Number: None

PATIENT
  Age: 69 Year
  Sex: Female
  Weight: 60.75 kg

DRUGS (2)
  1. HYDROCODONE BITARTRATE AND ACETAMINOPHEN [Suspect]
     Active Substance: ACETAMINOPHEN\HYDROCODONE BITARTRATE
     Indication: Pain
     Dosage: OTHER QUANTITY : 1 TABLET(S);?FREQUENCY : 4 TIMES A DAY;?
     Route: 048
     Dates: start: 20211119, end: 20211119
  2. ACETAMINOPHEN\HYDROCODONE [Suspect]
     Active Substance: ACETAMINOPHEN\HYDROCODONE
     Indication: Pain
     Dosage: OTHER QUANTITY : 1 TABLET(S);?FREQUENCY : 4 TIMES A DAY;?
     Route: 048
     Dates: start: 20211012, end: 20211017

REACTIONS (5)
  - Abdominal pain upper [None]
  - Oesophageal spasm [None]
  - Gastrointestinal pain [None]
  - Product quality issue [None]
  - Vomiting projectile [None]

NARRATIVE: CASE EVENT DATE: 20211119
